FAERS Safety Report 11793929 (Version 1)
Quarter: 2015Q4

REPORT INFORMATION
  Report Type: Spontaneous
  Country: US (occurrence: US)
  Receive Date: 20151202
  Receipt Date: 20151202
  Transmission Date: 20160305
  Serious: Yes (Other)
  Sender: FDA-Public Use
  Company Number: US-PFIZER INC-2015403128

PATIENT
  Age: 30 Year
  Sex: Male
  Weight: 98 kg

DRUGS (2)
  1. PRIMIDONE. [Suspect]
     Active Substance: PRIMIDONE
     Dosage: 500 MG, 2X/DAY
     Dates: start: 1978
  2. DILANTIN [Suspect]
     Active Substance: PHENYTOIN
     Indication: EPILEPSY
     Dosage: 600 MG, 1X/DAY
     Dates: start: 1978

REACTIONS (6)
  - Intervertebral disc disorder [Unknown]
  - Multiple fractures [Unknown]
  - Fall [Unknown]
  - Lower limb fracture [Unknown]
  - Back pain [Unknown]
  - Drug screen positive [Unknown]

NARRATIVE: CASE EVENT DATE: 1992
